FAERS Safety Report 9518384 (Version 1)
Quarter: 2013Q1

REPORT INFORMATION
  Report Type: Spontaneous
  Country: US (occurrence: None)
  Receive Date: 20130305
  Receipt Date: 20130305
  Transmission Date: 20140127
  Serious: Yes (Other)
  Sender: FDA-Public Use
  Company Number: 163-21880-12081097

PATIENT
  Age: 66 Year
  Sex: Female
  Weight: 66.3 kg

DRUGS (2)
  1. REVLIMID [Suspect]
     Indication: PLASMA CELL MYELOMA
     Dosage: 10 MG, PO
     Route: 048
     Dates: start: 20090814
  2. AVELOX (MOXIFLOXACIN HYDROCHLORIDE) (UNKNOWN) [Concomitant]

REACTIONS (3)
  - Painful respiration [None]
  - Fatigue [None]
  - Myalgia [None]
